FAERS Safety Report 7269495-2 (Version None)
Quarter: 2011Q1

REPORT INFORMATION
  Report Type: 
  Country: None (occurrence: None)
  Receive Date: 20110202
  Receipt Date: 20110118
  Transmission Date: 20110831
  Serious: Yes (Disabling, Other)
  Sender: FDA-Public Use
  Company Number: BR-BAYER-2010-005759

PATIENT
  Sex: Male
  Weight: 58 kg

DRUGS (6)
  1. UNKNOWN DRUG [Concomitant]
     Indication: HEPATITIS B
     Dosage: UNK
     Route: 048
     Dates: start: 20101101
  2. LAMIVUDINE [Concomitant]
     Indication: HEPATITIS
     Dosage: 1 DF, QD
     Route: 048
     Dates: start: 20070101, end: 20101101
  3. NEXAVAR [Suspect]
     Dosage: DAILY DOSE 2 DF
     Dates: start: 20101124, end: 20101201
  4. UNKNOWN DRUG [Concomitant]
     Dosage: UNK
     Route: 048
     Dates: start: 20080101
  5. NEXAVAR [Suspect]
     Indication: HEPATIC NEOPLASM MALIGNANT
     Dosage: 1 DF, QD
     Route: 048
     Dates: start: 20101101
  6. UNKNOWN DRUG [Concomitant]
     Dosage: UNK
     Route: 048
     Dates: start: 20080101

REACTIONS (23)
  - APHASIA [None]
  - RASH MACULAR [None]
  - DIARRHOEA [None]
  - DECREASED APPETITE [None]
  - SKIN DISCOLOURATION [None]
  - ASTHENIA [None]
  - DRY MOUTH [None]
  - EPISTAXIS [None]
  - WOUND [None]
  - STOMATITIS [None]
  - RASH [None]
  - COORDINATION ABNORMAL [None]
  - PRE-EXISTING CONDITION IMPROVED [None]
  - DIZZINESS [None]
  - MEMORY IMPAIRMENT [None]
  - INSOMNIA [None]
  - ABDOMINAL PAIN [None]
  - HAEMATEMESIS [None]
  - ABDOMINAL DISTENSION [None]
  - BLISTER [None]
  - SKIN LESION [None]
  - WEIGHT DECREASED [None]
  - OEDEMA PERIPHERAL [None]
